FAERS Safety Report 7543544-6 (Version None)
Quarter: 2011Q2

REPORT INFORMATION
  Report Type: 
  Country: None (occurrence: None)
  Receive Date: 20110613
  Receipt Date: 20020528
  Transmission Date: 20111010
  Serious: Yes (Death, Other)
  Sender: FDA-Public Use
  Company Number: PHFR2002GB00561

PATIENT
  Sex: Male
  Weight: 102 kg

DRUGS (1)
  1. CLOZAPINE [Suspect]
     Indication: SCHIZOPHRENIA
     Dosage: 400MG/DAY
     Route: 048
     Dates: start: 19980401

REACTIONS (11)
  - SPLENOMEGALY [None]
  - PULMONARY OEDEMA [None]
  - MALAISE [None]
  - LEFT VENTRICULAR FAILURE [None]
  - EATING DISORDER [None]
  - CARDIOMEGALY [None]
  - DILATATION VENTRICULAR [None]
  - VIRAL INFECTION [None]
  - PULMONARY CONGESTION [None]
  - HEPATIC STEATOSIS [None]
  - TREMOR [None]
